FAERS Safety Report 7405250-8 (Version None)
Quarter: 2011Q2

REPORT INFORMATION
  Report Type: 
  Country: None (occurrence: None)
  Receive Date: 20110411
  Receipt Date: 20110225
  Transmission Date: 20111010
  Serious: Yes (Hospitalization, Other)
  Sender: FDA-Public Use
  Company Number: US-BAYER-201025974NA

PATIENT
  Age: 23 Year
  Sex: Female
  Weight: 90.703 kg

DRUGS (21)
  1. OXYCODONE AND ACETAMINOPHEN [Concomitant]
     Indication: PRODUCT USED FOR UNKNOWN INDICATION
     Dosage: UNK
     Dates: start: 20080331
  2. PIROXICAM [NICOTINAMIDE,PIROXICAM] [Concomitant]
     Indication: PRODUCT USED FOR UNKNOWN INDICATION
     Dosage: UNK
     Dates: start: 20080923
  3. PERCOCET [Concomitant]
     Dosage: UNK UNK, PRN
     Dates: end: 20080405
  4. YASMIN [Suspect]
     Dosage: UNK UNK, UNK
     Route: 048
     Dates: start: 20071101, end: 20080401
  5. ZANTAC [Concomitant]
     Indication: PRODUCT USED FOR UNKNOWN INDICATION
     Dosage: 150 MG, BID
     Dates: start: 20080130
  6. BUSPIRONE [Concomitant]
     Indication: PRODUCT USED FOR UNKNOWN INDICATION
     Dosage: UNK
     Dates: start: 20080219
  7. HYDROCODONE BITARTRATE [Concomitant]
     Indication: PRODUCT USED FOR UNKNOWN INDICATION
     Dosage: UNK
     Dates: start: 20080226
  8. LORTAB [Concomitant]
     Indication: PRODUCT USED FOR UNKNOWN INDICATION
     Dosage: 7.5 MG, BID
     Dates: start: 20080130, end: 20080407
  9. CIPROFLOXACIN [Concomitant]
     Indication: PRODUCT USED FOR UNKNOWN INDICATION
     Dosage: 500 UNK, UNK
     Route: 048
     Dates: start: 20080226
  10. TPN [Concomitant]
     Dosage: 1 DF, TID
     Dates: end: 20080325
  11. M.V.I. [Concomitant]
     Dosage: UNK UNK, QD
     Dates: end: 20080325
  12. ZOLOFT [Concomitant]
     Indication: PRODUCT USED FOR UNKNOWN INDICATION
     Dosage: DAILY DOSE -1 MG
     Dates: start: 20071029
  13. PIROXICAM [NICOTINAMIDE,PIROXICAM] [Concomitant]
     Dosage: UNK
     Dates: start: 20090219
  14. NAPROXEN [Concomitant]
     Indication: PRODUCT USED FOR UNKNOWN INDICATION
     Dosage: 500 MG, PRN
     Dates: start: 20080331, end: 20080407
  15. BUSPAR [Concomitant]
     Dosage: 15 MG, BID
  16. PIROXICAM [NICOTINAMIDE,PIROXICAM] [Concomitant]
     Dosage: UNK
     Dates: start: 20081216
  17. PIROXICAM [NICOTINAMIDE,PIROXICAM] [Concomitant]
     Dosage: UNK
     Dates: start: 20090116
  18. BACTRIM [Concomitant]
     Dosage: UNK UNK, BID
  19. YAZ [Suspect]
     Indication: CONTRACEPTION
     Dosage: UNK, QD
     Dates: end: 20080408
  20. CYCLOBENZAPRINE [Concomitant]
  21. ZOLOFT [Concomitant]
     Dosage: 50 MG, QD

REACTIONS (10)
  - ABDOMINAL PAIN UPPER [None]
  - NAUSEA [None]
  - VOMITING [None]
  - ABDOMINAL PAIN [None]
  - ABDOMINAL TENDERNESS [None]
  - FAT INTOLERANCE [None]
  - CHOLELITHIASIS [None]
  - GALLBLADDER DISORDER [None]
  - CHOLECYSTITIS CHRONIC [None]
  - DYSPEPSIA [None]
